FAERS Safety Report 7164149-5 (Version None)
Quarter: 2010Q4

REPORT INFORMATION
  Report Type: 
  Country: None (occurrence: None)
  Receive Date: 20101215
  Receipt Date: 20101210
  Transmission Date: 20110411
  Serious: Yes (Other)
  Sender: FDA-Public Use
  Company Number: US-PFIZER INC-2010141184

PATIENT
  Sex: Male
  Weight: 79.4 kg

DRUGS (9)
  1. ATIVAN [Suspect]
     Dosage: UNK
     Route: 048
     Dates: start: 20100601
  2. ZOLOFT [Suspect]
     Indication: DEPRESSION
     Dosage: 25 MG, UNK
     Route: 048
     Dates: start: 20100901
  3. ZYPREXA [Suspect]
     Indication: ANXIETY
     Dosage: UNK
     Route: 048
     Dates: start: 20100601
  4. SEROQUEL [Suspect]
     Indication: FEELING ABNORMAL
     Dosage: 25 MG, UNK
     Route: 048
     Dates: start: 20100701, end: 20100819
  5. CELEXA [Suspect]
     Indication: PSYCHOTIC DISORDER
     Dosage: UNK
     Route: 048
     Dates: start: 20100701
  6. LISINOPRIL [Concomitant]
     Indication: HYPERTENSION
     Dosage: UNK MG, UNK
     Route: 048
  7. LOPRESSOR [Concomitant]
     Indication: HYPERTENSION
     Dosage: UNK MG, UNK
     Route: 048
  8. ALBUTEROL [Concomitant]
     Indication: CHRONIC OBSTRUCTIVE PULMONARY DISEASE
     Dosage: UNK
  9. ATROVENT [Concomitant]
     Indication: CHRONIC OBSTRUCTIVE PULMONARY DISEASE
     Dosage: UNK

REACTIONS (11)
  - AMNESIA [None]
  - COMA [None]
  - CONFUSIONAL STATE [None]
  - DISORIENTATION [None]
  - DYSKINESIA [None]
  - EYE DISORDER [None]
  - HALLUCINATION [None]
  - HEART RATE DECREASED [None]
  - HYPERSOMNIA [None]
  - MUSCLE RIGIDITY [None]
  - SEPSIS [None]
